FAERS Safety Report 15571722 (Version 1)
Quarter: 2018Q4

REPORT INFORMATION
  Report Type: Report from Study
  Country: US (occurrence: US)
  Receive Date: 20181031
  Receipt Date: 20181031
  Transmission Date: 20190205
  Serious: Yes (Other)
  Sender: FDA-Public Use
  Company Number: US-MYLANLABS-2018M1080237

PATIENT

DRUGS (5)
  1. CLADRIBINE. [Suspect]
     Active Substance: CLADRIBINE
     Indication: ACUTE MYELOID LEUKAEMIA
     Dosage: OVER 1-2 HOURS ON DAYS 1-5 OF INDUCTION THERAPY (CYCLE 1).
     Route: 042
  2. CYTARABINE. [Suspect]
     Active Substance: CYTARABINE
     Indication: ACUTE MYELOID LEUKAEMIA
     Dosage: ON DAYS 1-10 OF INDUCTION THERAPY (CYCLE 1).
     Route: 058
  3. CYTARABINE. [Suspect]
     Active Substance: CYTARABINE
     Dosage: ON DAYS 1-10 OF CONSOLIDATION THERAPY (CYCLE 2).
     Route: 058
  4. CLADRIBINE. [Suspect]
     Active Substance: CLADRIBINE
     Dosage: OVER 1-2 HOURS ON DAYS 1-3 OF CONSOLIDATION THERAPY (CYCLE 2).
     Route: 042
  5. DECITABINE. [Suspect]
     Active Substance: DECITABINE
     Indication: ACUTE MYELOID LEUKAEMIA
     Dosage: ON DAYS 1-5 OF CONSOLIDATION THERAPY (CYCLE 2).
     Route: 042

REACTIONS (2)
  - Renal failure [Unknown]
  - Bone marrow failure [Unknown]
